FAERS Safety Report 6293036-X (Version None)
Quarter: 2009Q3

REPORT INFORMATION
  Report Type: 
  Country: None (occurrence: None)
  Receive Date: 20090731
  Receipt Date: 20090727
  Transmission Date: 20100115
  Serious: Yes (Other)
  Sender: FDA-Public Use
  Company Number: US-BRISTOL-MYERS SQUIBB COMPANY-14717714

PATIENT
  Age: 16 Year
  Sex: Male
  Weight: 65 kg

DRUGS (2)
  1. ABATACEPT [Suspect]
     Indication: JUVENILE ARTHRITIS
     Route: 042
  2. MELOXICAM [Concomitant]
     Indication: PAIN
     Dosage: 7.5MG DAILY(QD)

REACTIONS (1)
  - HAEMATURIA [None]
